FAERS Safety Report 12852799 (Version 1)
Quarter: 2016Q4

REPORT INFORMATION
  Report Type: Spontaneous
  Country: BR (occurrence: BR)
  Receive Date: 20161017
  Receipt Date: 20161017
  Transmission Date: 20170207
  Serious: Yes (Other)
  Sender: FDA-Public Use
  Company Number: BR-PFIZER INC-2016479828

PATIENT
  Sex: Female

DRUGS (1)
  1. XALATAN [Suspect]
     Active Substance: LATANOPROST
     Indication: GLAUCOMA
     Dosage: ONCE AT NIGHT
     Dates: end: 201610

REACTIONS (3)
  - Eye inflammation [Unknown]
  - Cataract [Unknown]
  - Eye pain [Unknown]

NARRATIVE: CASE EVENT DATE: 201603
